FAERS Safety Report 7009251-3 (Version None)
Quarter: 2010Q3

REPORT INFORMATION
  Report Type: 
  Country: None (occurrence: None)
  Receive Date: 20100923
  Receipt Date: 20100910
  Transmission Date: 20110219
  Serious: Yes (Death)
  Sender: FDA-Public Use
  Company Number: US-SANOFI-AVENTIS-2010SA056543

PATIENT
  Sex: Female

DRUGS (5)
  1. ARAVA [Suspect]
     Indication: RHEUMATOID ARTHRITIS
     Route: 048
     Dates: start: 20020801, end: 20040801
  2. KLOR-CON [Concomitant]
  3. LASIX [Concomitant]
     Route: 048
  4. CELEBREX [Concomitant]
  5. PREDNISONE [Concomitant]
     Route: 065

REACTIONS (4)
  - CONSTIPATION [None]
  - HEPATIC FAILURE [None]
  - RESPIRATORY FAILURE [None]
  - SUBDURAL HAEMATOMA [None]
